FAERS Safety Report 13785975 (Version 2)
Quarter: 2017Q4

REPORT INFORMATION
  Report Type: Report from Study
  Country: FR (occurrence: FR)
  Receive Date: 20170725
  Receipt Date: 20171209
  Transmission Date: 20180320
  Serious: Yes (Death, Hospitalization, Other)
  Sender: FDA-Public Use
  Company Number: FR-BAXTER-2017BAX028324

PATIENT
  Age: 79 Year
  Sex: Male
  Weight: 91 kg

DRUGS (12)
  1. ENDOXAN 50 MG, COMPRIM? ENROB? [Suspect]
     Active Substance: CYCLOPHOSPHAMIDE
     Indication: OSTEOSARCOMA
     Dosage: REGIMEN 1,CUMULATIVE DOSE SINCE 1ST ADMINISTRATION 700 MG
     Route: 048
     Dates: start: 20170615, end: 20170621
  2. RAPAMUNE [Suspect]
     Active Substance: SIROLIMUS
     Indication: OSTEOSARCOMA
     Dosage: REGIMEN 1,CUMULATIVE DOSE SINCE 1ST ADMINISTRATION 44 MG
     Route: 048
     Dates: start: 20170615, end: 20170625
  3. MONOTILDIEM LP [Concomitant]
     Active Substance: DILTIAZEM HYDROCHLORIDE
     Indication: HYPERTENSION
     Route: 048
  4. SKENAN [Concomitant]
     Active Substance: MORPHINE SULFATE
     Indication: PRODUCT USED FOR UNKNOWN INDICATION
     Route: 065
  5. ZOLEDRONIC ACID [Suspect]
     Active Substance: ZOLEDRONIC ACID
     Indication: OSTEOSARCOMA
     Dosage: REGIMEN 1, CUMULATIVE DOSE SINCE 1ST ADMINISTRATION 4 MG
     Route: 042
     Dates: start: 20170616, end: 20170616
  6. INNOHEP [Concomitant]
     Active Substance: TINZAPARIN SODIUM
     Indication: DEEP VEIN THROMBOSIS
     Route: 030
     Dates: start: 20170317
  7. SERETIDE [Concomitant]
     Active Substance: FLUTICASONE PROPIONATE\SALMETEROL XINAFOATE
     Indication: PRODUCT USED FOR UNKNOWN INDICATION
     Dosage: 250/50 MICROGRAM
     Route: 065
  8. METHOTREXATE SODIUM. [Suspect]
     Active Substance: METHOTREXATE SODIUM
     Indication: OSTEOSARCOMA
     Dosage: REGIMEN 1, CUMULATIVE DOSAGE OF 20 MG SINCE 1ST ADMINISTRATION
     Route: 048
     Dates: start: 20170615, end: 20170625
  9. GABAPENTIN. [Concomitant]
     Active Substance: GABAPENTIN
     Indication: PRODUCT USED FOR UNKNOWN INDICATION
     Route: 065
  10. ZOPICLONE [Concomitant]
     Active Substance: ZOPICLONE
     Indication: PRODUCT USED FOR UNKNOWN INDICATION
     Route: 065
  11. FLECAINE [Concomitant]
     Active Substance: FLECAINIDE
     Indication: HYPERTENSION
     Route: 048
  12. ULTIBRO BREEZHALER [Concomitant]
     Active Substance: GLYCOPYRRONIUM\INDACATEROL
     Indication: CHRONIC OBSTRUCTIVE PULMONARY DISEASE
     Route: 048

REACTIONS (2)
  - Lymphopenia [Not Recovered/Not Resolved]
  - Lung infection [Fatal]

NARRATIVE: CASE EVENT DATE: 20170625
